FAERS Safety Report 4808177-0 (Version None)
Quarter: 2005Q4

REPORT INFORMATION
  Report Type: 
  Country: None (occurrence: None)
  Receive Date: 20051020
  Receipt Date: 20050920
  Transmission Date: 20060501
  Serious: Yes (Other)
  Sender: FDA-Public Use
  Company Number: 6017496

PATIENT
  Age: 44 Year
  Sex: Male

DRUGS (4)
  1. AZATHIOPRINE [Suspect]
     Indication: CROHN'S DISEASE
     Dosage: 50 MG (50 MG, 3 IN 1 D) ORAL
     Route: 048
  2. SALOFALK TABLET MSR 250 MG (MESALAZINE) [Concomitant]
  3. SALOFALK KLYSMA 2G/60G FLACON (MESALAZINE) [Concomitant]
  4. LOPERAMIDE [Concomitant]

REACTIONS (1)
  - MALIGNANT MELANOMA [None]
